FAERS Safety Report 6656305-7 (Version None)
Quarter: 2010Q1

REPORT INFORMATION
  Report Type: 
  Country: None (occurrence: None)
  Receive Date: 20100329
  Receipt Date: 20100319
  Transmission Date: 20100710
  Serious: Yes (Life-Threatening)
  Sender: FDA-Public Use
  Company Number: GXKR2010GB03325

PATIENT
  Age: 80 Year
  Sex: Male

DRUGS (20)
  1. OMEPRAZOLE [Suspect]
     Indication: BARRETT'S OESOPHAGUS
     Dosage: 40 MG, QD
     Route: 048
     Dates: start: 20100120, end: 20100223
  2. OMEPRAZOLE [Suspect]
     Indication: GASTRIC ULCER
  3. OMEPRAZOLE [Suspect]
     Indication: UPPER GASTROINTESTINAL HAEMORRHAGE
  4. AMIODARONE HYDROCHLORIDE [Suspect]
     Indication: SUPRAVENTRICULAR TACHYCARDIA
     Dosage: UNK
     Route: 048
     Dates: start: 20100121, end: 20100223
  5. ACETYLSALICYLIC ACID [Concomitant]
  6. BISOPROLOL FUMARATE [Concomitant]
     Dosage: 1.5MG
  7. BISOPROLOL FUMARATE [Concomitant]
     Dosage: 2.5 MG
  8. CLOPIDOGREL [Concomitant]
  9. AMPICILLIN SODIUM/SULBACTAM SODIUM [Concomitant]
  10. DICLOFENAC [Concomitant]
  11. ENOXAPARIN SODIUM [Concomitant]
  12. GAVISCON [Concomitant]
  13. GLICLAZIDE [Concomitant]
  14. GLYCERYL TRINITRATE [Concomitant]
  15. HYDROCORTISONE [Concomitant]
  16. LISINOPRIL [Concomitant]
  17. METFORMIN HYDROCHLORIDE [Concomitant]
  18. PARACETAMOL [Concomitant]
  19. PRAVASTATIN SODIUM [Concomitant]
  20. SITAGLIPTIN [Concomitant]

REACTIONS (3)
  - GINGIVAL BLEEDING [None]
  - IDIOPATHIC THROMBOCYTOPENIC PURPURA [None]
  - PETECHIAE [None]
